FAERS Safety Report 5958432-6 (Version None)
Quarter: 2008Q4

REPORT INFORMATION
  Report Type: 
  Country: None (occurrence: None)
  Receive Date: 20081119
  Receipt Date: 20081117
  Transmission Date: 20090506
  Serious: Yes (Life-Threatening)
  Sender: FDA-Public Use
  Company Number: DE-JNJFOC-20081103566

PATIENT
  Age: 25 Year
  Sex: Male
  Weight: 116 kg

DRUGS (21)
  1. RISPERDAL CONSTA [Suspect]
     Route: 030
  2. RISPERDAL CONSTA [Suspect]
     Route: 030
  3. RISPERDAL CONSTA [Suspect]
     Route: 030
  4. RISPERDAL CONSTA [Suspect]
     Route: 030
  5. RISPERDAL CONSTA [Suspect]
     Route: 030
  6. RISPERDAL CONSTA [Suspect]
     Indication: PSYCHOTIC DISORDER
     Route: 030
  7. FAUSTAN [Suspect]
     Dosage: 10-2.5 MG DAILY
     Route: 048
  8. FAUSTAN [Suspect]
     Route: 048
  9. FAUSTAN [Suspect]
     Route: 048
  10. FAUSTAN [Suspect]
     Route: 048
  11. FAUSTAN [Suspect]
     Route: 048
  12. FAUSTAN [Suspect]
     Route: 048
  13. FAUSTAN [Suspect]
     Indication: DRUG USE FOR UNKNOWN INDICATION
     Dosage: 10-40 MG
     Route: 048
  14. NEUROCIL [Suspect]
     Route: 048
  15. NEUROCIL [Suspect]
     Route: 048
  16. NEUROCIL [Suspect]
     Route: 048
  17. NEUROCIL [Suspect]
     Indication: DRUG USE FOR UNKNOWN INDICATION
     Route: 048
  18. VALPROATE SODIUM [Suspect]
     Route: 048
  19. VALPROATE SODIUM [Suspect]
     Route: 048
  20. VALPROATE SODIUM [Suspect]
     Route: 048
  21. VALPROATE SODIUM [Suspect]
     Indication: DRUG USE FOR UNKNOWN INDICATION
     Route: 048

REACTIONS (3)
  - ENCEPHALOPATHY [None]
  - HYPERPROLACTINAEMIA [None]
  - OVERDOSE [None]
